FAERS Safety Report 5174380-6 (Version None)
Quarter: 2006Q4

REPORT INFORMATION
  Report Type: 
  Country: None (occurrence: None)
  Receive Date: 20061206
  Receipt Date: 20061121
  Transmission Date: 20070319
  Serious: Yes (Hospitalization)
  Sender: FDA-Public Use
  Company Number: 232850

PATIENT
  Age: 57 Year
  Sex: Female

DRUGS (8)
  1. BEVACIZUMAB(BEVACIZUMAB) PWDR + SOLVENT,INFUSION SOLN, 100MG [Suspect]
     Indication: OVARIAN CANCER
     Dosage: 855 MG, Q3W, INTRAVENOUS
     Route: 042
     Dates: start: 20060907
  2. OXALIPLATIN [Suspect]
     Indication: OVARIAN CANCER
     Dosage: 115 MG/M2, Q3W, INTRAVENOUS
     Route: 042
     Dates: start: 20060907
  3. DOCETAXEL (DOCETAXEL) [Suspect]
     Indication: OVARIAN CANCER
     Dosage: 100 MG/KG, Q3W, INTRAVENOUS
     Route: 042
     Dates: start: 20060907
  4. LEVOTHYROXINE SODIUM [Concomitant]
  5. HYDROCHLOROTHIAZIDE [Concomitant]
  6. LANSOPRAZOLE [Concomitant]
  7. FAMOTIDINE [Concomitant]
  8. PERCOCET [Concomitant]

REACTIONS (5)
  - BLOOD PRESSURE INCREASED [None]
  - MENINGEAL DISORDER [None]
  - MENINGITIS [None]
  - TINNITUS [None]
  - VERTIGO POSITIONAL [None]
